FAERS Safety Report 5223803-2 (Version None)
Quarter: 2007Q1

REPORT INFORMATION
  Report Type: 
  Country: None (occurrence: None)
  Receive Date: 20070125
  Receipt Date: 20070112
  Transmission Date: 20070707
  Serious: Yes (Hospitalization)
  Sender: FDA-Public Use
  Company Number: HQWYE236401SEP06

PATIENT
  Age: 66 Year
  Sex: Male

DRUGS (14)
  1. PANTOPRAZOLE SODIUM [Suspect]
     Indication: OESOPHAGITIS
     Dosage: 40 MG 1X PER 1 DAY ORAL
     Route: 048
     Dates: start: 20060310, end: 20060410
  2. PLAVIX [Concomitant]
  3. SIMVASTATIN [Concomitant]
  4. CHONDROSULF (CHONDROITIN SULFATE SODIUM) [Concomitant]
  5. COPPER (COPPER) [Concomitant]
  6. GOLD (GOLD) [Concomitant]
  7. SELENIUM (SELENIUM) [Concomitant]
  8. SYNEDIL (SULPIRIDE) [Concomitant]
  9. COLCHICINE (COLCHICINE) [Concomitant]
  10. INEXIUM (ESOMEPRAZOLE) [Concomitant]
  11. TILCOTIL (TENOXICAM) [Concomitant]
  12. KARDEGIC (ACETYLSALICYLATE LYSINE) [Concomitant]
  13. CREON [Concomitant]
  14. RILUTEX (RILUZOLE) [Concomitant]

REACTIONS (2)
  - AMYOTROPHIC LATERAL SCLEROSIS [None]
  - CONCOMITANT DISEASE PROGRESSION [None]
